FAERS Safety Report 23074156 (Version 1)
Quarter: 2023Q4

REPORT INFORMATION
  Report Type: Spontaneous
  Country: US (occurrence: None)
  Receive Date: 20231017
  Receipt Date: 20231017
  Transmission Date: 20240110
  Serious: Yes (Hospitalization, Other)
  Sender: FDA-Public Use
  Company Number: US-Unichem Pharmaceuticals (USA) Inc-UCM202310-001283

PATIENT
  Age: 26 Year
  Sex: Female

DRUGS (1)
  1. DIVALPROEX SODIUM [Suspect]
     Active Substance: DIVALPROEX SODIUM
     Indication: Product used for unknown indication
     Dosage: 15 TABLETS OF 250 MG

REACTIONS (11)
  - Rhabdomyolysis [Recovering/Resolving]
  - Electrocardiogram QT prolonged [Recovering/Resolving]
  - Metabolic acidosis [Recovering/Resolving]
  - Hypocalcaemia [Recovering/Resolving]
  - Mental status changes [Recovering/Resolving]
  - Hyperammonaemia [Recovering/Resolving]
  - Tremor [Recovering/Resolving]
  - Hypernatraemia [Recovering/Resolving]
  - Hypotension [Recovering/Resolving]
  - Toxicity to various agents [Unknown]
  - Overdose [Unknown]
